FAERS Safety Report 20317180 (Version 1)
Quarter: 2022Q1

REPORT INFORMATION
  Report Type: Spontaneous
  Country: US (occurrence: US)
  Receive Date: 20220110
  Receipt Date: 20220110
  Transmission Date: 20220423
  Serious: Yes (Death, Hospitalization)
  Sender: FDA-Public Use
  Company Number: US-BAYER-2022A001889

PATIENT
  Age: 12 Year
  Sex: Female

DRUGS (7)
  1. NAPROXEN SODIUM [Suspect]
     Active Substance: NAPROXEN SODIUM
     Route: 048
  2. ACETAMINOPHEN AND CODEINE [Suspect]
     Active Substance: ACETAMINOPHEN\CODEINE PHOSPHATE
  3. TAMSULOSIN [Suspect]
     Active Substance: TAMSULOSIN
  4. ONDANSETRON [Suspect]
     Active Substance: ONDANSETRON
  5. LEVOTHYROXINE [Suspect]
     Active Substance: LEVOTHYROXINE
  6. NABUMETONE [Suspect]
     Active Substance: NABUMETONE
  7. IBUPROFEN [Suspect]
     Active Substance: IBUPROFEN

REACTIONS (1)
  - Toxicity to various agents [Fatal]
